FAERS Safety Report 9709961 (Version 1)
Quarter: 2013Q4

REPORT INFORMATION
  Report Type: Spontaneous
  Country: US (occurrence: US)
  Receive Date: 20131126
  Receipt Date: 20131126
  Transmission Date: 20140711
  Serious: Yes (Other)
  Sender: FDA-Public Use
  Company Number: US-JNJCP-30000188095

PATIENT
  Sex: Female
  Weight: 68 kg

DRUGS (3)
  1. NEUTROGENA AGE SHIELD SUNBLOCK SPF70 FACE [Suspect]
     Indication: PROPHYLAXIS
     Dosage: APPLIED LIBERALLY ONCE A DAY
     Route: 061
     Dates: start: 20131102, end: 20131105
  2. CALCIUM [Concomitant]
     Indication: PRODUCT USED FOR UNKNOWN INDICATION
     Dosage: ONCE A DAY SINCE YEARS
  3. FISH OIL [Concomitant]
     Indication: ROUTINE HEALTH MAINTENANCE
     Dosage: ONCE A DAY SINCE YEARS

REACTIONS (3)
  - Application site erythema [Recovered/Resolved]
  - Application site swelling [Recovered/Resolved]
  - Application site exfoliation [Recovered/Resolved]
